FAERS Safety Report 19599196 (Version 1)
Quarter: 2021Q3

REPORT INFORMATION
  Report Type: Spontaneous
  Country: US (occurrence: US)
  Receive Date: 20210723
  Receipt Date: 20210723
  Transmission Date: 20211014
  Serious: Yes (Other)
  Sender: FDA-Public Use
  Company Number: None

PATIENT
  Age: 51 Year
  Sex: Male
  Weight: 94.5 kg

DRUGS (2)
  1. SUTAB [Suspect]
     Active Substance: MAGNESIUM SULFATE\POTASSIUM CHLORIDE\SODIUM SULFATE
     Indication: COLONOSCOPY
     Dosage: ?          QUANTITY:12 TABLET(S);OTHER FREQUENCY:NIGHT BEFORE COLON;?
     Route: 048
     Dates: start: 20210722, end: 20210722
  2. FINASTERIDE. [Concomitant]
     Active Substance: FINASTERIDE

REACTIONS (8)
  - Flatulence [None]
  - Abdominal distension [None]
  - Chills [None]
  - Muscle spasms [None]
  - Pyrexia [None]
  - Vomiting [None]
  - Headache [None]
  - Tremor [None]

NARRATIVE: CASE EVENT DATE: 20210722
